FAERS Safety Report 24838031 (Version 1)
Quarter: 2025Q1

REPORT INFORMATION
  Report Type: Spontaneous
  Country: US (occurrence: US)
  Receive Date: 20250113
  Receipt Date: 20250113
  Transmission Date: 20250408
  Serious: Yes (Other)
  Sender: PFIZER
  Company Number: US-PFIZER INC-202500005008

PATIENT
  Age: 56 Year
  Sex: Female

DRUGS (22)
  1. IBRANCE [Suspect]
     Active Substance: PALBOCICLIB
     Dates: start: 20240901
  2. ANASTROZOLE [Suspect]
     Active Substance: ANASTROZOLE
  3. LANSOPRAZOLE [Concomitant]
     Active Substance: LANSOPRAZOLE
  4. OXYCODONE [Concomitant]
     Active Substance: OXYCODONE
  5. FEXOFENADINE [Concomitant]
     Active Substance: FEXOFENADINE HYDROCHLORIDE
  6. VITAMIN D3 [Concomitant]
     Active Substance: CHOLECALCIFEROL
  7. ONDANSETRON [Concomitant]
     Active Substance: ONDANSETRON
  8. BISACODYL [Concomitant]
     Active Substance: BISACODYL
  9. LOSARTAN [Concomitant]
     Active Substance: LOSARTAN
  10. LIDOCAINE [Concomitant]
     Active Substance: LIDOCAINE
  11. CYCLOBENZAPRINE [Concomitant]
     Active Substance: CYCLOBENZAPRINE
  12. ELIQUIS [Concomitant]
     Active Substance: APIXABAN
  13. ATORVASTATIN [Concomitant]
     Active Substance: ATORVASTATIN
  14. DOXEPIN [Concomitant]
     Active Substance: DOXEPIN
  15. TRIAMCINOLONE [Concomitant]
     Active Substance: TRIAMCINOLONE
  16. COLACE [Concomitant]
     Active Substance: DOCUSATE SODIUM
  17. VENLAFAXINE [Concomitant]
     Active Substance: VENLAFAXINE HYDROCHLORIDE
  18. ACETAMINOPHEN [Concomitant]
     Active Substance: ACETAMINOPHEN
  19. FENOFIBRATE [Concomitant]
     Active Substance: FENOFIBRATE
  20. SPIRONOLACTONE [Concomitant]
     Active Substance: SPIRONOLACTONE
  21. DILTIAZEM [Concomitant]
     Active Substance: DILTIAZEM
  22. TOPIRAMATE [Concomitant]
     Active Substance: TOPIRAMATE

REACTIONS (2)
  - Cough [Not Recovered/Not Resolved]
  - Dyspnoea exertional [Not Recovered/Not Resolved]

NARRATIVE: CASE EVENT DATE: 20240901
